FAERS Safety Report 13497464 (Version 2)
Quarter: 2017Q2

REPORT INFORMATION
  Report Type: Spontaneous
  Country: IE (occurrence: IE)
  Receive Date: 20170428
  Receipt Date: 20170503
  Transmission Date: 20170830
  Serious: Yes (Life-Threatening, Other)
  Sender: FDA-Public Use
  Company Number: IE-BAUSCH-BL-2017-011133

PATIENT
  Age: 31 Year
  Sex: Male

DRUGS (3)
  1. CETUXIMAB. [Suspect]
     Active Substance: CETUXIMAB
     Indication: SQUAMOUS CELL CARCINOMA OF THE TONGUE
     Dosage: EVERY CYCLE
     Route: 065
  2. FLUOROURACIL. [Suspect]
     Active Substance: FLUOROURACIL
     Indication: SQUAMOUS CELL CARCINOMA OF THE TONGUE
     Dosage: EVERY CYCLE
     Route: 065
  3. CISPLATIN. [Suspect]
     Active Substance: CISPLATIN
     Indication: SQUAMOUS CELL CARCINOMA OF THE TONGUE
     Dosage: EVERY CYCLE
     Route: 065

REACTIONS (1)
  - Neutropenic sepsis [Unknown]
